FAERS Safety Report 4762605-8 (Version None)
Quarter: 2005Q3

REPORT INFORMATION
  Report Type: 
  Country: None (occurrence: None)
  Receive Date: 20050907
  Receipt Date: 20050902
  Transmission Date: 20060218
  Serious: Yes (Other)
  Sender: FDA-Public Use
  Company Number: US-GLAXOSMITHKLINE-A0572876A

PATIENT
  Sex: Male

DRUGS (4)
  1. ADVAIR DISKUS 100/50 [Suspect]
     Indication: ASTHMA
     Dosage: 1PUFF TWICE PER DAY
     Route: 055
     Dates: end: 20050901
  2. PERIACTIN [Concomitant]
  3. SINGULAIR [Concomitant]
  4. ALBUTEROL [Concomitant]

REACTIONS (6)
  - ABDOMINAL PAIN UPPER [None]
  - CANDIDIASIS [None]
  - FATIGUE [None]
  - GASTROENTERITIS [None]
  - INSOMNIA [None]
  - OESOPHAGEAL CANDIDIASIS [None]
